FAERS Safety Report 6388960-3 (Version None)
Quarter: 2009Q4

REPORT INFORMATION
  Report Type: 
  Country: None (occurrence: None)
  Receive Date: 20091001
  Receipt Date: 20090930
  Transmission Date: 20100525
  Serious: Yes (Life-Threatening, Hospitalization, Other)
  Sender: FDA-Public Use
  Company Number: ADR28852009

PATIENT
  Sex: Female

DRUGS (4)
  1. RAMIPRIL [Suspect]
  2. VOLTAROL (SUSPECT) [Concomitant]
  3. HRT [Concomitant]
  4. LEVOTHYROXINE SODIUM [Concomitant]

REACTIONS (4)
  - DOCUMENTED HYPERSENSITIVITY TO ADMINISTERED DRUG [None]
  - HYPERTENSION [None]
  - RESUSCITATION [None]
  - SHOCK [None]
